FAERS Safety Report 5959251-7 (Version None)
Quarter: 2008Q4

REPORT INFORMATION
  Report Type: 
  Country: None (occurrence: None)
  Receive Date: 20081120
  Receipt Date: 20081111
  Transmission Date: 20090506
  Serious: Yes (Hospitalization, Other)
  Sender: FDA-Public Use
  Company Number: GB-ALLERGAN-0814330US

PATIENT
  Age: 22 Year
  Sex: Female

DRUGS (2)
  1. DYSPORT [Suspect]
     Indication: DRUG USE FOR UNKNOWN INDICATION
     Dosage: 400 UNITS, SINGLE
     Route: 030
     Dates: start: 20080305, end: 20080305
  2. MEPERIDINE HCL [Concomitant]
     Indication: PAIN

REACTIONS (3)
  - KIDNEY ENLARGEMENT [None]
  - PREMATURE LABOUR [None]
  - URINARY TRACT DISORDER [None]
